FAERS Safety Report 11412816 (Version 1)
Quarter: 2015Q3

REPORT INFORMATION
  Report Type: Spontaneous
  Country: US (occurrence: US)
  Receive Date: 20150821
  Receipt Date: 20150821
  Transmission Date: 20151125
  Serious: No
  Sender: FDA-Public Use
  Company Number: US-ELI_LILLY_AND_COMPANY-US201206004263

PATIENT
  Sex: Male

DRUGS (4)
  1. HUMULIN R [Suspect]
     Active Substance: INSULIN HUMAN
     Dosage: 1 U, EACH EVENING
     Dates: start: 20120609
  2. HUMULIN R [Suspect]
     Active Substance: INSULIN HUMAN
     Dosage: 1 U, QD
     Dates: start: 20120609
  3. HUMULIN R [Suspect]
     Active Substance: INSULIN HUMAN
     Dosage: 2 U, EACH MORNING
     Dates: start: 20120609
  4. METFORMIN [Concomitant]
     Active Substance: METFORMIN HYDROCHLORIDE
     Dosage: 1000 DF, BID

REACTIONS (3)
  - Contusion [Unknown]
  - Blood glucose decreased [Recovered/Resolved]
  - Injection site pain [Unknown]

NARRATIVE: CASE EVENT DATE: 20120609
